FAERS Safety Report 10560769 (Version 1)
Quarter: 2014Q4

REPORT INFORMATION
  Report Type: Report from Study
  Country: AU (occurrence: AU)
  Receive Date: 20141103
  Receipt Date: 20141103
  Transmission Date: 20150529
  Serious: Yes (Hospitalization, Other)
  Sender: FDA-Public Use
  Company Number: PHHY2014AU139634

PATIENT
  Sex: Male

DRUGS (1)
  1. CLOZARIL [Suspect]
     Active Substance: CLOZAPINE
     Indication: SCHIZOPHRENIA
     Dosage: 400 (UNIT UNSPECIFIED)
     Route: 048
     Dates: start: 19990404

REACTIONS (3)
  - Abnormal behaviour [Unknown]
  - Antipsychotic drug level decreased [Unknown]
  - Alcohol abuse [Unknown]
